FAERS Safety Report 14416443 (Version 1)
Quarter: 2018Q1

REPORT INFORMATION
  Report Type: Spontaneous
  Country: PL (occurrence: PL)
  Receive Date: 20180122
  Receipt Date: 20180122
  Transmission Date: 20180509
  Serious: Yes (Death, Life-Threatening, Other)
  Sender: FDA-Public Use
  Company Number: PL-ACCORD-062786

PATIENT
  Age: 67 Year
  Sex: Female

DRUGS (7)
  1. ENALAPRIL [Concomitant]
     Active Substance: ENALAPRIL
     Indication: HYPERTENSION
  2. MORPHINE [Concomitant]
     Active Substance: MORPHINE
     Dosage: DAILY
  3. FENTANYL. [Concomitant]
     Active Substance: FENTANYL
     Dosage: 50 G/DAY EVERY 3 DAYS
  4. CISPLATIN. [Suspect]
     Active Substance: CISPLATIN
     Indication: GALLBLADDER ADENOCARCINOMA
     Dosage: ON DAY 1, EVERY 21 DAYS
     Route: 042
  5. GEMCITABINE/GEMCITABINE HYDROCHLORIDE [Suspect]
     Active Substance: GEMCITABINE\GEMCITABINE HYDROCHLORIDE
     Indication: GALLBLADDER ADENOCARCINOMA
     Dosage: DAY 1 AND 8
     Route: 042
  6. HEPARIN [Concomitant]
     Active Substance: HEPARIN SODIUM
     Route: 058
  7. PARACETAMOL [Concomitant]
     Active Substance: ACETAMINOPHEN
     Route: 048

REACTIONS (11)
  - Hypotension [Unknown]
  - Toxicity to various agents [None]
  - Aspartate aminotransferase increased [Unknown]
  - Alanine aminotransferase increased [Unknown]
  - Leukopenia [Unknown]
  - Cardiopulmonary failure [Fatal]
  - Blood bilirubin increased [Unknown]
  - Abdominal pain upper [Unknown]
  - Anaemia [Unknown]
  - Asthenia [Unknown]
  - Neutropenia [Unknown]
